FAERS Safety Report 25899414 (Version 2)
Quarter: 2025Q4

REPORT INFORMATION
  Report Type: Spontaneous
  Country: US (occurrence: US)
  Receive Date: 20251009
  Receipt Date: 20251015
  Transmission Date: 20260117
  Serious: No
  Sender: ABBVIE
  Company Number: US-ABBVIE-6487821

PATIENT
  Age: 24 Year
  Sex: Male
  Weight: 95 kg

DRUGS (4)
  1. SKYRIZI [Suspect]
     Active Substance: RISANKIZUMAB-RZAA
     Indication: Pouchitis
     Route: 042
     Dates: start: 202502, end: 202502
  2. SKYRIZI [Suspect]
     Active Substance: RISANKIZUMAB-RZAA
     Route: 042
     Dates: start: 202506, end: 202506
  3. SKYRIZI [Suspect]
     Active Substance: RISANKIZUMAB-RZAA
     Route: 058
     Dates: start: 202506
  4. SKYRIZI [Suspect]
     Active Substance: RISANKIZUMAB-RZAA
     Route: 042
     Dates: start: 202504, end: 202504

REACTIONS (1)
  - Product storage error [Recovered/Resolved]

NARRATIVE: CASE EVENT DATE: 20250923
